FAERS Safety Report 4511121-7 (Version None)
Quarter: 2004Q4

REPORT INFORMATION
  Report Type: 
  Country: None (occurrence: None)
  Receive Date: 20041012
  Receipt Date: 20040916
  Transmission Date: 20050328
  Serious: No
  Sender: FDA-Public Use
  Company Number: PHEH2004US08276

PATIENT
  Age: 34 Year
  Sex: Male
  Weight: 109.3 kg

DRUGS (3)
  1. ELIDEL [Suspect]
     Indication: ECZEMA
     Dosage: BID, TOPICAL
     Route: 061
     Dates: start: 20040302, end: 20040729
  2. SYNALAR (FLUOCINOLONE ACETONIDE) [Concomitant]
  3. RANITIDINE [Concomitant]

REACTIONS (3)
  - BLISTER [None]
  - RASH [None]
  - SKIN FISSURES [None]
